FAERS Safety Report 7734379-X (Version None)
Quarter: 2011Q3

REPORT INFORMATION
  Report Type: 
  Country: None (occurrence: None)
  Receive Date: 20110907
  Receipt Date: 20110826
  Transmission Date: 20111222
  Serious: Yes (Hospitalization, Other)
  Sender: FDA-Public Use
  Company Number: US-UCBSA-040227

PATIENT
  Sex: Female
  Weight: 71.6 kg

DRUGS (5)
  1. WELLBUTRIN [Concomitant]
     Indication: DEPRESSION
     Route: 048
     Dates: start: 20020101
  2. EFFEXOR [Concomitant]
     Indication: DEPRESSION
     Route: 048
     Dates: start: 20020101
  3. ASACOL HD [Concomitant]
     Indication: CROHN'S DISEASE
     Route: 048
     Dates: start: 20100101
  4. CARVEDILOL [Concomitant]
     Indication: HYPERTENSION
     Route: 048
     Dates: start: 20090101
  5. CIMZIA [Suspect]
     Indication: CROHN'S DISEASE
     Route: 058
     Dates: start: 20101001, end: 20110601

REACTIONS (10)
  - WOUND INFECTION [None]
  - CLOSTRIDIAL INFECTION [None]
  - ORAL CANDIDIASIS [None]
  - LIGAMENT SPRAIN [None]
  - JOINT SWELLING [None]
  - FUNGAL INFECTION [None]
  - ABSCESS [None]
  - ANAL FISTULA [None]
  - SKIN INJURY [None]
  - LOCALISED INFECTION [None]
